FAERS Safety Report 6934225-8 (Version None)
Quarter: 2010Q3

REPORT INFORMATION
  Report Type: 
  Country: None (occurrence: None)
  Receive Date: 20100820
  Receipt Date: 20100817
  Transmission Date: 20110219
  Serious: Yes (Life-Threatening, Hospitalization)
  Sender: FDA-Public Use
  Company Number: GB-B.I. PHARMACEUTICALS,INC./RIDGEFIELD-2010-BP-08725YA

PATIENT
  Age: 71 Year
  Sex: Male
  Weight: 76 kg

DRUGS (4)
  1. TAMSULOSIN HCL [Suspect]
     Dosage: 400 MCG
     Route: 048
     Dates: start: 20080703, end: 20100621
  2. ASPIRIN [Concomitant]
     Indication: RETINAL VEIN OCCLUSION
     Dosage: 75 MG
     Route: 048
     Dates: start: 20031223
  3. FINASTERIDE [Concomitant]
     Indication: PROSTATISM
     Dosage: 5 MG
     Route: 048
     Dates: start: 20071116
  4. INHALER [Concomitant]
     Indication: ASTHMA

REACTIONS (2)
  - LOSS OF CONSCIOUSNESS [None]
  - SYNCOPE [None]
